FAERS Safety Report 4518292-7 (Version None)
Quarter: 2004Q4

REPORT INFORMATION
  Report Type: 
  Country: None (occurrence: None)
  Receive Date: 20041130
  Receipt Date: 20041116
  Transmission Date: 20050328
  Serious: Yes (Other)
  Sender: FDA-Public Use
  Company Number: SUSI-2004-00748

PATIENT
  Age: 6 Year
  Sex: Male

DRUGS (1)
  1. CARBATROL [Suspect]
     Indication: CONVULSION
     Dosage: 500 MG, AM + PM
     Dates: start: 20040201

REACTIONS (2)
  - CONVULSION [None]
  - VISION BLURRED [None]
